FAERS Safety Report 8090206-5 (Version None)
Quarter: 2012Q1

REPORT INFORMATION
  Report Type: 
  Country: None (occurrence: None)
  Receive Date: 20120129
  Receipt Date: 20111115
  Transmission Date: 20120608
  Serious: No
  Sender: FDA-Public Use
  Company Number: US-ABBOTT-11P-163-0854621-00

PATIENT
  Age: 49 Year
  Sex: Female

DRUGS (7)
  1. HYOSCYAMINE [Concomitant]
     Indication: MUSCLE SPASMS
     Route: 048
  2. PREDNISONE TAB [Concomitant]
     Indication: ARTHRITIS
     Dosage: 2.5MG DAILY
     Route: 048
  3. HUMIRA [Suspect]
     Indication: RHEUMATOID ARTHRITIS
     Dates: start: 20110822
  4. LEFLUNOMIDE [Concomitant]
     Indication: ARTHRITIS
     Dosage: 10MG DAILY
     Route: 048
  5. M.V.I. [Concomitant]
     Indication: ROUTINE HEALTH MAINTENANCE
     Route: 048
  6. VIT E [Concomitant]
     Indication: PREMENSTRUAL SYNDROME
     Route: 048
  7. VITAMIN B-12 [Concomitant]
     Indication: PRODUCT USED FOR UNKNOWN INDICATION
     Dosage: DAILY

REACTIONS (9)
  - MOOD ALTERED [None]
  - ARTHRALGIA [None]
  - INJECTION SITE PRURITUS [None]
  - FATIGUE [None]
  - MUSCLE SPASMS [None]
  - INJECTION SITE REACTION [None]
  - MAMMOGRAM ABNORMAL [None]
  - GASTRIC DISORDER [None]
  - INJECTION SITE ERYTHEMA [None]
